FAERS Safety Report 7123460-4 (Version None)
Quarter: 2010Q4

REPORT INFORMATION
  Report Type: 
  Country: None (occurrence: None)
  Receive Date: 20101125
  Receipt Date: 20101117
  Transmission Date: 20110411
  Serious: Yes (Hospitalization)
  Sender: FDA-Public Use
  Company Number: US-BIOGENIDEC-2010BI038115

PATIENT
  Age: 42 Year
  Sex: Male

DRUGS (2)
  1. AVONEX [Suspect]
     Indication: MULTIPLE SCLEROSIS
     Route: 030
     Dates: start: 20060722, end: 20081128
  2. AVONEX [Suspect]
     Route: 030
     Dates: start: 20091128

REACTIONS (2)
  - EYE DISORDER [None]
  - MULTIPLE SCLEROSIS RELAPSE [None]
